FAERS Safety Report 8315446-9 (Version None)
Quarter: 2012Q2

REPORT INFORMATION
  Report Type: 
  Country: None (occurrence: None)
  Receive Date: 20120426
  Receipt Date: 20120412
  Transmission Date: 20120825
  Serious: Yes (Death, Other)
  Sender: FDA-Public Use
  Company Number: GB-BAUSCH-2012BL002494

PATIENT
  Sex: Female
  Weight: 1 kg

DRUGS (6)
  1. MINIMS PHENYLEPHRINE HYDROCHLORIDE 2.5% [Suspect]
     Indication: OPHTHALMOLOGICAL EXAMINATION
     Route: 047
     Dates: start: 20120329, end: 20120329
  2. CAFFEINE CITRATE [Concomitant]
  3. MINIMS CYCLOPENTOLATE HYDROCHLORIDE 0.5% [Suspect]
     Indication: OPHTHALMOLOGICAL EXAMINATION
     Route: 047
     Dates: start: 20120329, end: 20120329
  4. GENTAMICIN [Concomitant]
  5. PENICILLIN G [Concomitant]
  6. SODIUM CHLORIDE [Concomitant]

REACTIONS (5)
  - SEPSIS NEONATAL [None]
  - OFF LABEL USE [None]
  - NECROTISING COLITIS [None]
  - SYNCOPE [None]
  - C-REACTIVE PROTEIN INCREASED [None]
